FAERS Safety Report 14642273 (Version 2)
Quarter: 2018Q1

REPORT INFORMATION
  Report Type: Spontaneous
  Country: JP (occurrence: JP)
  Receive Date: 20180315
  Receipt Date: 20180321
  Transmission Date: 20180509
  Serious: Yes (Hospitalization, Other)
  Sender: FDA-Public Use
  Company Number: JP-SA-2018SA034456

PATIENT
  Age: 63 Year
  Sex: Female
  Weight: 76.6 kg

DRUGS (17)
  1. JZOLOFT [Suspect]
     Active Substance: SERTRALINE HYDROCHLORIDE
     Indication: PANIC DISORDER
     Route: 048
     Dates: start: 20140805
  2. DESYREL [Suspect]
     Active Substance: TRAZODONE HYDROCHLORIDE
     Indication: PANIC DISORDER
     Route: 048
     Dates: start: 2013
  3. MOHRUS [Suspect]
     Active Substance: KETOPROFEN
     Indication: PERIARTHRITIS
     Dosage: 2 PATCHES/DAY
     Route: 062
     Dates: start: 20151125
  4. LEXOTAN [Suspect]
     Active Substance: BROMAZEPAM
     Indication: PANIC DISORDER
     Route: 048
     Dates: start: 20160510
  5. LIVOSTIN [Suspect]
     Active Substance: LEVOCABASTINE HYDROCHLORIDE
     Indication: CONJUNCTIVITIS ALLERGIC
     Route: 047
     Dates: start: 20170523
  6. GATIFLO [Suspect]
     Active Substance: GATIFLOXACIN
     Indication: DRY EYE
     Route: 047
     Dates: start: 20170424
  7. NITROPEN [Suspect]
     Active Substance: NITROGLYCERIN
     Indication: CHEST PAIN
     Route: 048
     Dates: start: 20141121
  8. INVESTIGATIONAL DRUG [Suspect]
     Active Substance: INVESTIGATIONAL PRODUCT
     Indication: TYPE 2 DIABETES MELLITUS
     Dosage: DOSE AND FREQUENCY-10 - 20 POINTS ON THE SCALE
     Route: 065
     Dates: start: 20171113
  9. ALLEGRA [Suspect]
     Active Substance: FEXOFENADINE HYDROCHLORIDE
     Indication: NASOPHARYNGITIS
     Route: 048
     Dates: start: 20180109
  10. WYPAX [Suspect]
     Active Substance: LORAZEPAM
     Indication: PANIC DISORDER
     Route: 048
     Dates: start: 20150616
  11. METGLUCO [Suspect]
     Active Substance: METFORMIN HYDROCHLORIDE
     Indication: TYPE 2 DIABETES MELLITUS
     Route: 048
     Dates: start: 20170821
  12. LANSOPRAZOLE OD [Suspect]
     Active Substance: LANSOPRAZOLE
     Indication: CHRONIC GASTRITIS
     Route: 048
     Dates: start: 20160705
  13. HYALEIN [Suspect]
     Active Substance: HYALURONATE SODIUM
     Indication: DRY EYE
     Route: 047
     Dates: start: 20161124
  14. MYSLEE [Suspect]
     Active Substance: ZOLPIDEM TARTRATE
     Indication: INSOMNIA
     Route: 048
     Dates: start: 20150616
  15. TAGAMET [Suspect]
     Active Substance: CIMETIDINE
     Indication: CHEST PAIN
     Route: 048
     Dates: start: 20170920
  16. CALONAL [Suspect]
     Active Substance: ACETAMINOPHEN
     Indication: NASOPHARYNGITIS
     Route: 048
     Dates: start: 20180109
  17. DEPAS [Suspect]
     Active Substance: ETIZOLAM
     Indication: PANIC DISORDER
     Route: 048
     Dates: start: 20150714

REACTIONS (5)
  - Hypoglycaemia [Not Recovered/Not Resolved]
  - Pneumonia aspiration [Recovered/Resolved]
  - Hypoglycaemic encephalopathy [Not Recovered/Not Resolved]
  - Suicide attempt [Unknown]
  - Overdose [Unknown]

NARRATIVE: CASE EVENT DATE: 20180131
